FAERS Safety Report 15477996 (Version 1)
Quarter: 2018Q4

REPORT INFORMATION
  Report Type: Spontaneous
  Country: PT (occurrence: PT)
  Receive Date: 20181009
  Receipt Date: 20181009
  Transmission Date: 20190205
  Serious: Yes (Death, Hospitalization, Disabling, Other)
  Sender: FDA-Public Use
  Company Number: PT-SA-2018SA193277

PATIENT
  Age: 81 Year
  Sex: Female

DRUGS (1)
  1. MYOZYME [Suspect]
     Active Substance: ALGLUCOSIDASE ALFA
     Indication: GLYCOGEN STORAGE DISEASE TYPE II
     Dosage: UNK UNK, 2/2 WEEKS
     Route: 041
     Dates: start: 20101202, end: 20180426

REACTIONS (3)
  - Fall [Unknown]
  - Respiratory failure [Fatal]
  - Hip fracture [Unknown]

NARRATIVE: CASE EVENT DATE: 201805
